FAERS Safety Report 9589915 (Version 1)
Quarter: 2013Q4

REPORT INFORMATION
  Report Type: Spontaneous
  Country: US (occurrence: US)
  Receive Date: 20131003
  Receipt Date: 20131003
  Transmission Date: 20140711
  Serious: No
  Sender: FDA-Public Use
  Company Number: US-AMGEN-USASP2012073350

PATIENT
  Sex: Female

DRUGS (12)
  1. ENBREL [Suspect]
     Indication: RHEUMATOID ARTHRITIS
     Dosage: UNK
     Dates: start: 2001
  2. XANAX [Concomitant]
     Dosage: UNK
  3. FLUTICASONE [Concomitant]
     Dosage: UNK
  4. ZYRTEC [Concomitant]
     Dosage: UNK
  5. VICODIN [Concomitant]
     Dosage: UNK
  6. FLUOXETIN [Concomitant]
     Dosage: UNK
  7. HYDROCHLORTHIAZID [Concomitant]
     Dosage: UNK
  8. VENTOLIN                           /00139501/ [Concomitant]
     Dosage: UNK
  9. PRILOSEC                           /00661201/ [Concomitant]
     Dosage: UNK
  10. MONTELUKAST [Concomitant]
     Dosage: UNK
  11. MULTIVITAMINS, PLAIN [Concomitant]
     Dosage: UNK
  12. FIBER [Concomitant]
     Dosage: UNK

REACTIONS (1)
  - Drug ineffective [Unknown]
